FAERS Safety Report 25337259 (Version 2)
Quarter: 2025Q3

REPORT INFORMATION
  Report Type: Report from Study
  Country: US (occurrence: US)
  Receive Date: 20250520
  Receipt Date: 20250829
  Transmission Date: 20251020
  Serious: Yes (Hospitalization)
  Sender: ABBVIE
  Company Number: US-ABBVIE-6285609

PATIENT
  Age: 73 Year
  Sex: Female

DRUGS (1)
  1. RINVOQ [Suspect]
     Active Substance: UPADACITINIB
     Indication: Rheumatoid arthritis
     Route: 048
     Dates: start: 20241101

REACTIONS (10)
  - Urinary tract infection [Recovered/Resolved]
  - Illness [Unknown]
  - Arthritis [Unknown]
  - Urinary tract infection [Not Recovered/Not Resolved]
  - Vomiting [Unknown]
  - Retching [Unknown]
  - Diarrhoea [Unknown]
  - Pyrexia [Unknown]
  - Hallucination [Unknown]
  - Colitis ulcerative [Unknown]

NARRATIVE: CASE EVENT DATE: 20250101
